FAERS Safety Report 19615586 (Version 2)
Quarter: 2021Q3

REPORT INFORMATION
  Report Type: Spontaneous
  Country: JP (occurrence: JP)
  Receive Date: 20210727
  Receipt Date: 20210813
  Transmission Date: 20211014
  Serious: Yes (Other)
  Sender: FDA-Public Use
  Company Number: JP-OTSUKA-2021_025699

PATIENT
  Age: 4 Decade
  Sex: Female

DRUGS (1)
  1. ABILIFY MAINTENA [Suspect]
     Active Substance: ARIPIPRAZOLE
     Indication: SCHIZOPHRENIA
     Dosage: 400MG/SHOT, Q4W
     Route: 030
     Dates: start: 201906

REACTIONS (2)
  - Maternal exposure during pregnancy [Unknown]
  - Premature labour [Unknown]
